FAERS Safety Report 20525697 (Version 1)
Quarter: 2022Q1

REPORT INFORMATION
  Report Type: Spontaneous
  Country: AR (occurrence: AR)
  Receive Date: 20220228
  Receipt Date: 20220228
  Transmission Date: 20220423
  Serious: Yes (Other)
  Sender: FDA-Public Use
  Company Number: AR-MYLANLABS-2022M1012438

PATIENT
  Age: 38 Year
  Sex: Male

DRUGS (3)
  1. CLOZAPINE [Suspect]
     Active Substance: CLOZAPINE
     Indication: Schizophrenia
     Dosage: 400 MILLIGRAM, QD
  2. VALPROATE SODIUM [Concomitant]
     Active Substance: VALPROATE SODIUM
     Dosage: 1 GRAM, QD (1 G/D)
  3. BIPERIDEN [Concomitant]
     Active Substance: BIPERIDEN
     Dosage: 1 MILLIGRAM, QD (1 MG/D)

REACTIONS (2)
  - Hallucination [Recovering/Resolving]
  - Psychomotor retardation [Unknown]
